FAERS Safety Report 9456397 (Version 1)
Quarter: 2013Q3

REPORT INFORMATION
  Report Type: Spontaneous
  Country: IN (occurrence: IN)
  Receive Date: 20130813
  Receipt Date: 20130813
  Transmission Date: 20140515
  Serious: Yes (Other)
  Sender: FDA-Public Use
  Company Number: IN-PFIZER INC-2013217020

PATIENT
  Age: 72 Year
  Sex: Male

DRUGS (1)
  1. PACLITAXEL [Suspect]
     Indication: ARTERIAL RESTENOSIS
     Dosage: UNK

REACTIONS (1)
  - Vascular pseudoaneurysm [Recovered/Resolved]
